FAERS Safety Report 25742618 (Version 2)
Quarter: 2025Q3

REPORT INFORMATION
  Report Type: Spontaneous
  Country: US (occurrence: US)
  Receive Date: 20250830
  Receipt Date: 20250904
  Transmission Date: 20251020
  Serious: Yes (Other)
  Sender: CSL BEHRING
  Company Number: US-BEH-2025205378

PATIENT
  Age: 36 Year
  Sex: Male

DRUGS (3)
  1. HUMATE-P [Suspect]
     Active Substance: HUMAN COAGULATION FACTOR VIII/VON WILLEBRAND FACTOR COMPLEX
     Indication: Von Willebrand^s disease
     Route: 042
     Dates: start: 202505
  2. HUMATE-P [Suspect]
     Active Substance: HUMAN COAGULATION FACTOR VIII/VON WILLEBRAND FACTOR COMPLEX
     Route: 042
     Dates: start: 202505
  3. HUMATE-P [Suspect]
     Active Substance: HUMAN COAGULATION FACTOR VIII/VON WILLEBRAND FACTOR COMPLEX
     Dosage: INFUSE 2961 RCOF UNITS ((2665-3257)) SLOW IV PUSH SLOW IV PUSH ONCE DAILY ON POST-OP
     Route: 042
     Dates: start: 202505

REACTIONS (4)
  - Umbilical haemorrhage [Unknown]
  - Abdominal hernia infection [Unknown]
  - Hernia [Unknown]
  - Post procedural haemorrhage [Unknown]

NARRATIVE: CASE EVENT DATE: 20250801
